FAERS Safety Report 14157267 (Version 1)
Quarter: 2017Q4

REPORT INFORMATION
  Report Type: Spontaneous
  Country: KR (occurrence: KR)
  Receive Date: 20171103
  Receipt Date: 20171103
  Transmission Date: 20180321
  Serious: Yes (Other)
  Sender: FDA-Public Use
  Company Number: KR-MYLANLABS-2017M1068792

PATIENT
  Age: 52 Year
  Sex: Male

DRUGS (2)
  1. IMATINIB [Suspect]
     Active Substance: IMATINIB
     Indication: C-KIT GENE MUTATION
     Route: 065
  2. IMATINIB [Suspect]
     Active Substance: IMATINIB
     Indication: METASTATIC MALIGNANT MELANOMA
     Route: 065

REACTIONS (3)
  - Therapeutic response decreased [Unknown]
  - Disease progression [Unknown]
  - Drug resistance [Unknown]
